FAERS Safety Report 11109161 (Version 7)
Quarter: 2015Q3

REPORT INFORMATION
  Report Type: Report from Study
  Country: US (occurrence: US)
  Receive Date: 20150513
  Receipt Date: 20150928
  Transmission Date: 20151125
  Serious: Yes (Hospitalization, Other)
  Sender: FDA-Public Use
  Company Number: US-AMGEN-USASL2015044182

PATIENT
  Age: 59 Year
  Sex: Male

DRUGS (27)
  1. CENTRUM SILVER                     /02363801/ [Concomitant]
     Active Substance: VITAMINS
     Dosage: 1 UNK, QD
     Route: 048
     Dates: start: 20090604
  2. HYDRALAZINE HCL [Concomitant]
     Active Substance: HYDRALAZINE HYDROCHLORIDE
     Indication: HYPERTENSION
     Dosage: 100 MG, 1/2 PO TID FOR BLOOD PRESSURE ALONG WITH 1/2 OF 50 MG
     Route: 048
     Dates: start: 20150502
  3. OMEPRAZOLE. [Concomitant]
     Active Substance: OMEPRAZOLE
     Dosage: 40 MG, UNK, DAILY
     Route: 048
     Dates: start: 20140502
  4. ACETAMINOPHEN W/OXYCODONE [Concomitant]
     Active Substance: ACETAMINOPHEN\OXYCODONE HYDROCHLORIDE
     Dosage: UNK UNK, QID 10-325 MG
     Route: 048
     Dates: start: 20140530
  5. TRAMADOL HYDROCHLORIDE. [Concomitant]
     Active Substance: TRAMADOL HYDROCHLORIDE
     Indication: PAIN
     Dosage: 50 MG, UNK Q 6 HOURS
     Route: 048
     Dates: start: 20140502
  6. LASIX [Concomitant]
     Active Substance: FUROSEMIDE
     Indication: FLUID RETENTION
     Dosage: 40 MG, BID
     Route: 048
     Dates: start: 20120708
  7. NYSTATIN. [Concomitant]
     Active Substance: NYSTATIN
     Dosage: 100000 UNIT, EVERY DAY FOR 01 WEEK
     Route: 061
     Dates: start: 20130817
  8. ZYRTEC [Concomitant]
     Active Substance: CETIRIZINE HYDROCHLORIDE
     Indication: PRURITUS
  9. DILTIAZEM HCL [Concomitant]
     Active Substance: DILTIAZEM HYDROCHLORIDE
     Dosage: 180 MG, DAILY
     Route: 048
     Dates: start: 20140530
  10. ISOSORBIDE DINITRATE. [Concomitant]
     Active Substance: ISOSORBIDE DINITRATE
     Dosage: 10 MG, BID
     Route: 048
     Dates: start: 20140502
  11. SINGULAIR [Concomitant]
     Active Substance: MONTELUKAST SODIUM
     Dosage: 10 MG, DAILY
     Route: 048
     Dates: start: 20150408
  12. VENTOLIN HFA [Concomitant]
     Active Substance: ALBUTEROL SULFATE
     Indication: WHEEZING
  13. ASPIRIN                            /00002701/ [Concomitant]
     Active Substance: ASPIRIN
     Dosage: 81 MG, UNK
     Dates: start: 20080611
  14. CARVEDILOL. [Concomitant]
     Active Substance: CARVEDILOL
     Dosage: 25 MG, 1 AND HALF
     Route: 048
     Dates: start: 20140502
  15. COMBIGAN [Concomitant]
     Active Substance: BRIMONIDINE TARTRATE\TIMOLOL MALEATE
     Dosage: 0.2-0.5 % AS DIRECTED
  16. LISINOPRIL. [Concomitant]
     Active Substance: LISINOPRIL
     Dosage: 40 MG, BID
     Route: 048
     Dates: start: 20140530
  17. SODIUM BICARBONATE. [Concomitant]
     Active Substance: SODIUM BICARBONATE
     Dosage: 650 MG, TID
     Dates: start: 20140502
  18. VENTOLIN HFA [Concomitant]
     Active Substance: ALBUTEROL SULFATE
     Indication: COUGH
     Dosage: 1-2 PUFFS Q 4-6 HRS
     Dates: start: 20150107
  19. ZYRTEC [Concomitant]
     Active Substance: CETIRIZINE HYDROCHLORIDE
     Indication: HYPERSENSITIVITY
     Dosage: UNK
     Dates: start: 20130517
  20. HUMULIN NOS [Concomitant]
     Active Substance: INSULIN HUMAN
     Dosage: 22 UNIT, UNK
     Route: 058
     Dates: start: 20140711
  21. HYDRALAZINE HCL [Concomitant]
     Active Substance: HYDRALAZINE HYDROCHLORIDE
     Dosage: 50 MG, V2 TAB PO TID AND 1/2 OF 100MG AL
  22. PHOSLO [Concomitant]
     Active Substance: CALCIUM ACETATE
     Dosage: 667 MG, TID
     Route: 048
     Dates: start: 20140502
  23. ZAROXOLYN [Concomitant]
     Active Substance: METOLAZONE
     Dosage: 5 MG, UNK
     Route: 048
     Dates: start: 20130708
  24. ENBREL [Suspect]
     Active Substance: ETANERCEPT
     Indication: ANKYLOSING SPONDYLITIS
     Dosage: 50 MG, QWK
     Route: 065
     Dates: start: 20140605, end: 201506
  25. ATORVASTATIN CALCIUM. [Concomitant]
     Active Substance: ATORVASTATIN CALCIUM
     Indication: BLOOD CHOLESTEROL INCREASED
     Dosage: 20 MG, UNK
     Route: 048
  26. HUMULIN NOS [Concomitant]
     Active Substance: INSULIN HUMAN
     Dosage: 20 UNIT, UNK
     Route: 058
  27. LUMIGAN [Concomitant]
     Active Substance: BIMATOPROST
     Dosage: 0.01 %, USE AS DIRECTED.
     Dates: start: 20140530

REACTIONS (25)
  - Hyperuricaemia [Unknown]
  - Haematocrit decreased [Unknown]
  - Salivary gland calculus [Recovered/Resolved]
  - Pharyngeal oedema [Recovered/Resolved]
  - Carpal tunnel syndrome [Unknown]
  - Neuropathy peripheral [Unknown]
  - Ankylosing spondylitis [Not Recovered/Not Resolved]
  - Chronic kidney disease [Unknown]
  - Drug effect incomplete [Unknown]
  - Arthralgia [Unknown]
  - Obesity [Unknown]
  - Musculoskeletal stiffness [Unknown]
  - Red blood cell count decreased [Unknown]
  - Therapeutic response unexpected [Not Recovered/Not Resolved]
  - Pain [Unknown]
  - Back pain [Unknown]
  - Haemoglobin abnormal [Unknown]
  - Mean cell haemoglobin [Unknown]
  - Type 1 diabetes mellitus [Not Recovered/Not Resolved]
  - Mean cell volume decreased [Unknown]
  - Red cell distribution width increased [Unknown]
  - Cough [Unknown]
  - Wheezing [Unknown]
  - Drug ineffective [Not Recovered/Not Resolved]
  - Vomiting [Recovered/Resolved]

NARRATIVE: CASE EVENT DATE: 2014
